FAERS Safety Report 5916532-0 (Version None)
Quarter: 2008Q4

REPORT INFORMATION
  Report Type: 
  Country: None (occurrence: None)
  Receive Date: 20081013
  Receipt Date: 20081003
  Transmission Date: 20090506
  Serious: Yes (Other)
  Sender: FDA-Public Use
  Company Number: B0534811A

PATIENT
  Age: 33 Year
  Sex: Female

DRUGS (4)
  1. SERETIDE DISKUS [Suspect]
     Indication: DRUG USE FOR UNKNOWN INDICATION
     Dosage: 500MG PER DAY
     Route: 065
  2. VENTOLIN [Suspect]
     Indication: DRUG USE FOR UNKNOWN INDICATION
     Route: 065
  3. TELFAST [Suspect]
     Indication: DRUG USE FOR UNKNOWN INDICATION
     Route: 065
  4. XOLAIR [Suspect]
     Indication: ASTHMA
     Dosage: 375MG TWO TIMES PER WEEK
     Route: 058
     Dates: start: 20080521, end: 20080716

REACTIONS (1)
  - ABORTION SPONTANEOUS [None]
